FAERS Safety Report 8917319 (Version 1)
Quarter: 2012Q4

REPORT INFORMATION
  Report Type: 
  Country: US (occurrence: US)
  Receive Date: 20121120
  Receipt Date: 20121120
  Transmission Date: 20130627
  Serious: No
  Sender: FDA-Public Use
  Company Number: US-009507513-1211USA005721

PATIENT
  Age: 31 Year
  Sex: Female

DRUGS (5)
  1. SAPHRIS [Suspect]
     Indication: PSYCHOTIC DISORDER
     Dosage: UNK
     Route: 060
     Dates: start: 201208
  2. SAPHRIS [Suspect]
     Dosage: 20 mg, qd
     Dates: start: 2012
  3. SAPHRIS [Suspect]
     Dosage: 10 mg, qd
     Route: 060
     Dates: start: 201011
  4. ENBREL [Concomitant]
  5. CYMBALTA [Concomitant]

REACTIONS (3)
  - Mental disorder [Not Recovered/Not Resolved]
  - Abnormal behaviour [Not Recovered/Not Resolved]
  - Inappropriate schedule of drug administration [Unknown]
